FAERS Safety Report 8576916-1 (Version None)
Quarter: 2012Q3

REPORT INFORMATION
  Report Type: 
  Country: None (occurrence: None)
  Receive Date: 20120807
  Receipt Date: 20120726
  Transmission Date: 20120928
  Serious: Yes (Other)
  Sender: FDA-Public Use
  Company Number: US-VERTEX PHARMACEUTICALS INC.-AE-2012-010368

PATIENT
  Sex: Female
  Weight: 83.99 kg

DRUGS (13)
  1. GLIMPERIDE [Concomitant]
     Indication: DIABETES MELLITUS
     Route: 048
  2. ATIVAN [Concomitant]
     Indication: HYPERSENSITIVITY
  3. LISINOPRIL [Concomitant]
     Indication: HYPERTENSION
  4. GLUMETZA ER [Concomitant]
     Indication: DIABETES MELLITUS
  5. INCIVEK [Suspect]
     Indication: HEPATITIS C
     Route: 048
     Dates: start: 20120603, end: 20120725
  6. ANAPROX DS [Concomitant]
  7. PEGASYS [Concomitant]
     Indication: HEPATITIS C
     Route: 058
     Dates: start: 20120603, end: 20120725
  8. ACIPHEX EC [Concomitant]
  9. ENJUVIA [Concomitant]
  10. RIBASPHERE [Concomitant]
     Indication: HEPATITIS C
     Route: 048
     Dates: start: 20120603, end: 20120706
  11. RIBASPHERE [Concomitant]
     Route: 048
     Dates: start: 20120706, end: 20120725
  12. CODEINE SULFATE [Concomitant]
     Indication: HYPERSENSITIVITY
  13. PROCRIT [Concomitant]
     Indication: ANAEMIA
     Dates: start: 20120712

REACTIONS (12)
  - WHITE BLOOD CELL COUNT DECREASED [None]
  - ASTHENIA [None]
  - FATIGUE [None]
  - RED BLOOD CELL COUNT DECREASED [None]
  - OPTIC NERVE DISORDER [None]
  - ANORECTAL DISCOMFORT [None]
  - HAEMORRHOIDAL HAEMORRHAGE [None]
  - ALOPECIA [None]
  - PLATELET COUNT DECREASED [None]
  - SKIN IRRITATION [None]
  - PROCTALGIA [None]
  - RASH PRURITIC [None]
